FAERS Safety Report 10188605 (Version 1)
Quarter: 2014Q2

REPORT INFORMATION
  Report Type: Spontaneous
  Country: GB (occurrence: GB)
  Receive Date: 20140522
  Receipt Date: 20140522
  Transmission Date: 20141212
  Serious: Yes (Other)
  Sender: FDA-Public Use
  Company Number: GB-B.I. PHARMACEUTICALS,INC./RIDGEFIELD-2014-BI-22108UK

PATIENT
  Sex: Female

DRUGS (2)
  1. AFATINIB [Suspect]
     Indication: NON-SMALL CELL LUNG CANCER
     Route: 065
  2. AFATINIB [Suspect]
     Route: 065

REACTIONS (2)
  - Metastases to central nervous system [Unknown]
  - Diarrhoea [Recovered/Resolved]
